FAERS Safety Report 5164000-9 (Version None)
Quarter: 2006Q4

REPORT INFORMATION
  Report Type: 
  Country: None (occurrence: None)
  Receive Date: 20061204
  Receipt Date: 20020506
  Transmission Date: 20070319
  Serious: Yes (Hospitalization)
  Sender: FDA-Public Use
  Company Number: US-BRISTOL-MYERS SQUIBB COMPANY-11849452

PATIENT
  Age: 15 Day
  Sex: Male
  Weight: 3 kg

DRUGS (7)
  1. SUSTIVA [Suspect]
     Dosage: THERAPY DURING THE FIRST 7 WEEKS OF GESTATION
     Route: 064
     Dates: end: 20010717
  2. RETROVIR [Suspect]
     Dosage: MOTHER RECEIVED INFUSION AT DELIVERY
     Route: 064
     Dates: start: 20020219, end: 20020219
  3. VIRACEPT [Suspect]
     Route: 064
     Dates: start: 20010717, end: 20020219
  4. COMBIVIR [Suspect]
     Route: 064
  5. RETROVIR [Suspect]
     Route: 048
     Dates: start: 20020219, end: 20020101
  6. ZOVIRAX [Concomitant]
     Route: 064
     Dates: start: 20020201, end: 20020219
  7. INSULIN [Concomitant]
     Dosage: THERAPY INITIATED PRIOR TO CONCEPTION
     Route: 064
     Dates: end: 20020219

REACTIONS (8)
  - BLOOD LACTATE DEHYDROGENASE INCREASED [None]
  - HYPOCALCAEMIA [None]
  - LACTIC ACIDOSIS [None]
  - LIPASE INCREASED [None]
  - METABOLIC ACIDOSIS [None]
  - MUSCLE TWITCHING [None]
  - PREGNANCY [None]
  - TONIC CLONIC MOVEMENTS [None]
